FAERS Safety Report 13839571 (Version 1)
Quarter: 2017Q3

REPORT INFORMATION
  Report Type: Spontaneous
  Country: US (occurrence: US)
  Receive Date: 20170805
  Receipt Date: 20170805
  Transmission Date: 20171127
  Serious: Yes (Death)
  Sender: FDA-Public Use
  Company Number: None

PATIENT
  Age: 48 Year
  Sex: Female

DRUGS (19)
  1. AMIKACIN [Concomitant]
     Active Substance: AMIKACIN
  2. NOREPINEPHRINE. [Concomitant]
     Active Substance: NOREPINEPHRINE
  3. PHENYLEPHRINE [Concomitant]
     Active Substance: PHENYLEPHRINE\PHENYLEPHRINE HYDROCHLORIDE
  4. CHLORHEXADINE [Concomitant]
     Active Substance: CHLORHEXIDINE
  5. METRONIDAZOLE. [Concomitant]
     Active Substance: METRONIDAZOLE
  6. TRIAMCINOLONE ACETONIDE. [Concomitant]
     Active Substance: TRIAMCINOLONE ACETONIDE
  7. HYPERTONIC SALINE 3% [Suspect]
     Active Substance: SODIUM CHLORIDE
     Indication: INTRACRANIAL PRESSURE INCREASED
     Dosage: 80ML/HR CONTINUOUS IV
     Route: 042
     Dates: start: 20170219, end: 20170220
  8. FAMOTIDINE. [Concomitant]
     Active Substance: FAMOTIDINE
  9. LEVETIRACETAM. [Concomitant]
     Active Substance: LEVETIRACETAM
  10. METHYLPREDNISOLONE. [Concomitant]
     Active Substance: METHYLPREDNISOLONE
  11. PROPOFOL. [Concomitant]
     Active Substance: PROPOFOL
  12. AZTREONAM. [Concomitant]
     Active Substance: AZTREONAM
  13. CLOBETASOL [Concomitant]
     Active Substance: CLOBETASOL
  14. FENTANYL. [Concomitant]
     Active Substance: FENTANYL
  15. HEPARIN [Concomitant]
     Active Substance: HEPARIN SODIUM
  16. INSULIN ASPART [Concomitant]
     Active Substance: INSULIN ASPART
  17. VANCOMYCIN [Concomitant]
     Active Substance: VANCOMYCIN
  18. ONDANSETRON [Concomitant]
     Active Substance: ONDANSETRON
  19. MIDAZOLAM [Concomitant]
     Active Substance: MIDAZOLAM HYDROCHLORIDE

REACTIONS (8)
  - Retinal vasculitis [None]
  - Pneumonitis [None]
  - Intestinal ischaemia [None]
  - Muscle twitching [None]
  - Respiratory failure [None]
  - Cerebral infarction [None]
  - Fluid overload [None]
  - Status epilepticus [None]

NARRATIVE: CASE EVENT DATE: 20170220
